FAERS Safety Report 6417798-3 (Version None)
Quarter: 2009Q4

REPORT INFORMATION
  Report Type: 
  Country: None (occurrence: None)
  Receive Date: 20091027
  Receipt Date: 20091027
  Transmission Date: 20100525
  Serious: No
  Sender: FDA-Public Use
  Company Number: None

PATIENT
  Age: 53 Year
  Sex: Female
  Weight: 65 kg

DRUGS (10)
  1. PROPOFOL [Suspect]
     Indication: INTRACRANIAL PRESSURE INCREASED
     Dosage: 80 MCG/KG/MIN
     Dates: start: 20090914, end: 20090916
  2. BUSPIRONE HCL [Concomitant]
  3. HEPARIN [Concomitant]
  4. HYDROXYCHLOROQUINE SULFATE [Concomitant]
  5. INSULIN [Concomitant]
  6. LANSOPAZOLE [Concomitant]
  7. NIMODIPINE [Concomitant]
  8. SENNA [Concomitant]
  9. SIMVASTATIN [Concomitant]
  10. HYPERTONIC SALINE [Concomitant]

REACTIONS (3)
  - BLOOD AMYLASE INCREASED [None]
  - BLOOD TRIGLYCERIDES INCREASED [None]
  - LIPASE INCREASED [None]
